FAERS Safety Report 8473736-3 (Version None)
Quarter: 2012Q2

REPORT INFORMATION
  Report Type: 
  Country: None (occurrence: None)
  Receive Date: 20120628
  Receipt Date: 20111202
  Transmission Date: 20120825
  Serious: Yes (Other)
  Sender: FDA-Public Use
  Company Number: US-MYLANLABS-2011S1020946

PATIENT
  Age: 49 Year
  Sex: Male
  Weight: 72.58 kg

DRUGS (19)
  1. FLUPHENAZINE HCL [Concomitant]
     Route: 048
     Dates: start: 20111012
  2. LITHIUM CARBONATE [Concomitant]
     Route: 048
     Dates: start: 20111012
  3. LISINOPRIL [Concomitant]
     Route: 048
     Dates: start: 20110920
  4. LEVOTHYROXINE [Concomitant]
     Route: 048
     Dates: start: 20111104
  5. OLANZAPINE [Concomitant]
     Route: 030
  6. LORAZEPAM [Concomitant]
     Route: 030
     Dates: start: 20111011, end: 20111011
  7. CLOZAPINE [Suspect]
     Indication: SCHIZOPHRENIA, PARANOID TYPE
     Route: 048
     Dates: start: 20110930, end: 20111012
  8. FENOFIBRATE [Concomitant]
     Route: 048
     Dates: start: 20110920
  9. LORAZEPAM [Concomitant]
     Route: 048
     Dates: start: 20111012
  10. LEVOTHYROXINE [Concomitant]
     Route: 048
     Dates: start: 20110927, end: 20111103
  11. LORAZEPAM [Concomitant]
     Route: 030
     Dates: start: 20111005, end: 20111005
  12. BENZTROPINE MESYLATE [Concomitant]
     Route: 048
     Dates: start: 20111012, end: 20111024
  13. FLUPHENAZINE DECANOATE [Concomitant]
     Route: 030
  14. POTASSIUM ACETATE [Concomitant]
     Route: 048
     Dates: start: 20110920
  15. DOCUSATE SODIUM [Concomitant]
     Route: 048
     Dates: start: 20110920
  16. ACTOS [Concomitant]
  17. METOPROLOL TARTRATE [Concomitant]
     Route: 048
     Dates: start: 20110920
  18. ASPIRIN [Concomitant]
     Route: 048
     Dates: start: 20110920
  19. METFORMIN HCL [Concomitant]
     Dates: start: 20110920

REACTIONS (2)
  - LEUKOPENIA [None]
  - GRANULOCYTOPENIA [None]
